FAERS Safety Report 6632390-3 (Version None)
Quarter: 2010Q1

REPORT INFORMATION
  Report Type: 
  Country: None (occurrence: None)
  Receive Date: 20100312
  Receipt Date: 20100308
  Transmission Date: 20100710
  Serious: Yes (Hospitalization)
  Sender: FDA-Public Use
  Company Number: SE-MERCK-1003SWE00005

PATIENT
  Age: 81 Year
  Sex: Female

DRUGS (6)
  1. ZOCOR [Suspect]
     Indication: HYPERLIPIDAEMIA
     Route: 048
     Dates: end: 20100103
  2. ZOCOR [Suspect]
     Indication: HYPERTRIGLYCERIDAEMIA
     Route: 048
     Dates: end: 20100103
  3. ZOLOFT [Suspect]
     Route: 048
  4. WARAN [Suspect]
     Indication: CEREBRAL THROMBOSIS
     Route: 048
     Dates: start: 20050530, end: 20100103
  5. SELOKEN ZOC [Concomitant]
     Route: 065
  6. PROPAVAN [Concomitant]
     Route: 065

REACTIONS (1)
  - CEREBRAL HAEMORRHAGE [None]
